FAERS Safety Report 5192967-1 (Version None)
Quarter: 2006Q4

REPORT INFORMATION
  Report Type: 
  Country: None (occurrence: None)
  Receive Date: 20061228
  Receipt Date: 20060324
  Transmission Date: 20070319
  Serious: No
  Sender: FDA-Public Use
  Company Number: US-GLAXOSMITHKLINE-A0598953A

PATIENT
  Age: 83 Year
  Sex: Female

DRUGS (10)
  1. FLONASE [Suspect]
     Dosage: 2SPR PER DAY
     Route: 045
     Dates: start: 20040101
  2. OMEPRAZOLE [Concomitant]
  3. VERAPAMIL [Concomitant]
  4. UNKNOWN MEDICATION [Concomitant]
  5. CALCIUM [Concomitant]
  6. LUTEIN [Concomitant]
  7. ASPIRIN [Concomitant]
  8. CENTRUM SILVER [Concomitant]
  9. PREMARIN [Concomitant]
  10. LACTASE [Concomitant]

REACTIONS (2)
  - DRUG INEFFECTIVE [None]
  - DYSPHONIA [None]
